FAERS Safety Report 8816754 (Version 2)
Quarter: 2012Q4

REPORT INFORMATION
  Report Type: Spontaneous
  Country: US (occurrence: None)
  Receive Date: 20121001
  Receipt Date: 20121116
  Transmission Date: 20130627
  Serious: Yes (Death)
  Sender: FDA-Public Use
  Company Number: 2012-490

PATIENT
  Age: 45 Year
  Sex: Male

DRUGS (8)
  1. FAZACLO [Suspect]
     Route: 048
     Dates: start: 20070803, end: 20120615
  2. BUSPAR (BUSPIRONE HYDROCHLORIDE) [Concomitant]
  3. TOPAMAX (TOPIRAMATE) [Concomitant]
  4. ZANTAC (RANITIDINE HYDROCHLORIDE) [Concomitant]
  5. PROZAC (FLUOXETINE HYDROCHLORIDE) [Concomitant]
  6. VITAMIN D (COLECALCIFEROL) [Concomitant]
  7. LUVOX (FLUVOXAMINE MALEATE) [Concomitant]
  8. LAMITCAL (LAMOTRIGINE) [Concomitant]

REACTIONS (2)
  - Heat stroke [None]
  - Cardiac arrest [None]
